FAERS Safety Report 5773778-2 (Version None)
Quarter: 2008Q2

REPORT INFORMATION
  Report Type: 
  Country: None (occurrence: None)
  Receive Date: 20080616
  Receipt Date: 20080605
  Transmission Date: 20081010
  Serious: Yes (Hospitalization)
  Sender: FDA-Public Use
  Company Number: US-JNJFOC-20080103260

PATIENT
  Sex: Female
  Weight: 62.82 kg

DRUGS (7)
  1. REMICADE [Suspect]
     Indication: RHEUMATOID ARTHRITIS
     Route: 042
  2. NAMENDA [Concomitant]
  3. ARACEPT [Concomitant]
     Indication: DEMENTIA
  4. PREDNISONE TAB [Concomitant]
     Indication: RHEUMATOID ARTHRITIS
  5. EFFEXOR [Concomitant]
  6. VICODIN [Concomitant]
  7. LORAZEPAM [Concomitant]

REACTIONS (3)
  - BLEEDING TIME PROLONGED [None]
  - FALL [None]
  - SUBDURAL HAEMATOMA [None]
